FAERS Safety Report 5536343-8 (Version None)
Quarter: 2007Q4

REPORT INFORMATION
  Report Type: 
  Country: None (occurrence: None)
  Receive Date: 20071206
  Receipt Date: 20071126
  Transmission Date: 20080405
  Serious: Yes (Hospitalization)
  Sender: FDA-Public Use
  Company Number: JP-ABBOTT-07P-087-0424965-00

PATIENT
  Age: 63 Year
  Sex: Male

DRUGS (5)
  1. LEVOTHYROXINE SODIUM [Suspect]
     Indication: HYPOTHYROIDISM
     Dates: start: 20051215, end: 20060105
  2. LEVOTHYROXINE SODIUM [Suspect]
     Dates: start: 20060105
  3. DRIED THYROID POWDER [Concomitant]
     Indication: HORMONE REPLACEMENT THERAPY
     Dosage: NOT REPORTED
  4. LIOTHYRONINE [Concomitant]
     Indication: HORMONE REPLACEMENT THERAPY
     Dosage: NOT REPORTED
  5. LIOTHYRONINE [Concomitant]
     Dosage: NOT REPORTED

REACTIONS (1)
  - LIVER DISORDER [None]
